FAERS Safety Report 6854537-6 (Version None)
Quarter: 2010Q3

REPORT INFORMATION
  Report Type: 
  Country: None (occurrence: None)
  Receive Date: 20100717
  Receipt Date: 20080201
  Transmission Date: 20110219
  Serious: No
  Sender: FDA-Public Use
  Company Number: US-PFIZER INC-2007097520

PATIENT
  Sex: Female
  Weight: 59.1 kg

DRUGS (10)
  1. CHANTIX [Suspect]
     Indication: SMOKING CESSATION THERAPY
     Route: 048
     Dates: start: 20070919, end: 20070921
  2. KLONOPIN [Suspect]
     Indication: ANXIETY
     Dates: start: 20050101
  3. DOXEPIN HCL [Concomitant]
     Indication: DEPRESSION
  4. ATENOLOL [Concomitant]
     Indication: ATRIAL FIBRILLATION
  5. LEVOSALBUTAMOL [Concomitant]
  6. TIOTROPIUM BROMIDE [Concomitant]
  7. FLONASE [Concomitant]
  8. SINEQUAN [Concomitant]
  9. ESTROGENS [Concomitant]
  10. ALL OTHER THERAPEUTIC PRODUCTS [Concomitant]
     Indication: SINUS DISORDER

REACTIONS (8)
  - ANXIETY [None]
  - DISTURBANCE IN ATTENTION [None]
  - DRUG INEFFECTIVE [None]
  - DRY MOUTH [None]
  - MALAISE [None]
  - NAUSEA [None]
  - PSYCHOMOTOR HYPERACTIVITY [None]
  - SOMNOLENCE [None]
